FAERS Safety Report 9272866 (Version 3)
Quarter: 2013Q2

REPORT INFORMATION
  Report Type: Report from Study
  Country: US (occurrence: US)
  Receive Date: 20130506
  Receipt Date: 20130617
  Transmission Date: 20140414
  Serious: Yes (Hospitalization)
  Sender: FDA-Public Use
  Company Number: US-ALEXION-A201201724

PATIENT
  Age: 52 Year
  Sex: Male
  Weight: 82 kg

DRUGS (19)
  1. SOLIRIS [Suspect]
     Indication: PAROXYSMAL NOCTURNAL HAEMOGLOBINURIA
     Dosage: UNK
     Route: 042
  2. LANTUS [Concomitant]
     Indication: DIABETES MELLITUS
     Dosage: 24 UNITS Q HOUR OF SLEEP
     Route: 058
  3. LISINOPRIL [Concomitant]
     Indication: BLOOD PRESSURE MANAGEMENT
     Dosage: 20 MG, QD
     Route: 048
  4. OMEPRAZOLE [Concomitant]
     Indication: ABDOMINAL DISCOMFORT
     Dosage: 40 MG, QD
     Route: 048
  5. OXYCODONE [Concomitant]
     Dosage: 1-2 TABS, Q6H, PRN
     Route: 048
  6. ZOFRAN [Concomitant]
  7. KEFLEX [Concomitant]
  8. ZOCOR [Concomitant]
  9. TRAMADOL [Concomitant]
  10. KLONOPIN [Concomitant]
  11. LUNESTA [Concomitant]
  12. ZOLOFT [Concomitant]
  13. TENORMIN [Concomitant]
  14. NIACIN [Concomitant]
     Dosage: 1000 MG, QD
     Route: 048
  15. HUMALOG [Concomitant]
     Dosage: SLIDING SCALE
     Route: 058
  16. ACETAMINOPHEN [Concomitant]
     Dosage: 650 MG, Q4H, PRN
     Route: 048
  17. PROZAC [Concomitant]
     Dosage: 80 MG, QD
     Route: 048
  18. FLONASE [Concomitant]
     Dosage: 1 SPRAY NASALLY QD PRN
     Route: 045
  19. LANTUS [Concomitant]
     Indication: DIABETES MELLITUS

REACTIONS (8)
  - Pancytopenia [Not Recovered/Not Resolved]
  - Chest pain [Recovered/Resolved]
  - Epistaxis [Recovered/Resolved]
  - Dehydration [Recovered/Resolved]
  - Feeling jittery [Recovered/Resolved]
  - Restless legs syndrome [Recovered/Resolved]
  - Dyspepsia [Recovered/Resolved]
  - Diarrhoea [Recovered/Resolved]
